FAERS Safety Report 4960197-1 (Version None)
Quarter: 2006Q1

REPORT INFORMATION
  Report Type: 
  Country: None (occurrence: None)
  Receive Date: 20060328
  Receipt Date: 20060317
  Transmission Date: 20060701
  Serious: Yes (Other)
  Sender: FDA-Public Use
  Company Number: 2006027020

PATIENT
  Sex: Female

DRUGS (6)
  1. NEURONTIN [Suspect]
     Indication: WRIST FRACTURE
     Dosage: 500 MG (500 MG, 1 IN 1 D),
  2. LYRICA [Suspect]
     Indication: CANCER PAIN
     Dosage: 300 MG (150 MG, 2 IN 1 D),
     Dates: start: 20050101
  3. FENTANYL [Suspect]
     Indication: ILL-DEFINED DISORDER
  4. CLONAZEPAM [Concomitant]
  5. TAMOXIFEN CITRATE [Concomitant]
  6. AMBIEN [Concomitant]

REACTIONS (23)
  - AMNESIA [None]
  - BACK PAIN [None]
  - BALANCE DISORDER [None]
  - CANCER PAIN [None]
  - CLUMSINESS [None]
  - CONDITION AGGRAVATED [None]
  - CONFUSIONAL STATE [None]
  - CONVULSION [None]
  - CORRECTIVE LENS USER [None]
  - DIZZINESS [None]
  - EYE DISORDER [None]
  - FALL [None]
  - FEELING JITTERY [None]
  - ILL-DEFINED DISORDER [None]
  - LOSS OF CONSCIOUSNESS [None]
  - NECK PAIN [None]
  - NERVOUSNESS [None]
  - OCULAR VASCULAR DISORDER [None]
  - PHARMACEUTICAL PRODUCT COMPLAINT [None]
  - ST. LOUIS ENCEPHALITIS [None]
  - TREMOR [None]
  - WEIGHT DECREASED [None]
  - WEST NILE VIRAL INFECTION [None]
